FAERS Safety Report 4476942-8 (Version None)
Quarter: 2004Q4

REPORT INFORMATION
  Report Type: 
  Country: None (occurrence: None)
  Receive Date: 20041012
  Receipt Date: 20041001
  Transmission Date: 20050328
  Serious: Yes (Hospitalization, Other)
  Sender: FDA-Public Use
  Company Number: KII-2004-0013534

PATIENT
  Age: 43 Year
  Sex: Female

DRUGS (7)
  1. MORPHINE SULFATE [Suspect]
     Indication: PAIN
  2. OTHER HYPNOTICS AND SEDATIVES () [Suspect]
  3. MUSCLE RELAXANTS () [Suspect]
  4. TIZANIDINE (TIZANIDINE) [Suspect]
  5. CYCLOBENZAPRINE HCL [Suspect]
  6. BENZODIAZEPINE DERIVATIVES () [Suspect]
  7. AMITRIPTYLINE HCL [Suspect]

REACTIONS (16)
  - AGGRESSION [None]
  - AGITATION [None]
  - ALKALOSIS [None]
  - AREFLEXIA [None]
  - BACK PAIN [None]
  - BLOOD PH DECREASED [None]
  - COMA [None]
  - HEADACHE [None]
  - MUSCLE TWITCHING [None]
  - MYOCARDIAL INFARCTION [None]
  - NECK PAIN [None]
  - PERICARDITIS [None]
  - PNEUMONIA ASPIRATION [None]
  - PYREXIA [None]
  - RESTLESSNESS [None]
  - VIRAL INFECTION [None]
